FAERS Safety Report 21974103 (Version 2)
Quarter: 2023Q2

REPORT INFORMATION
  Report Type: Spontaneous
  Country: RU (occurrence: RU)
  Receive Date: 20230209
  Receipt Date: 20230515
  Transmission Date: 20230722
  Serious: No
  Sender: FDA-Public Use
  Company Number: RU-BAYER-2023P007305

PATIENT
  Sex: Female

DRUGS (1)
  1. DIENOGEST\ESTRADIOL VALERATE [Suspect]
     Active Substance: DIENOGEST\ESTRADIOL VALERATE
     Dosage: UNK
     Route: 048
     Dates: start: 2010

REACTIONS (5)
  - Food poisoning [Recovered/Resolved]
  - Intermenstrual bleeding [Recovered/Resolved]
  - Product dose omission issue [None]
  - Vomiting [Recovered/Resolved]
  - Nausea [Recovered/Resolved]
